FAERS Safety Report 16695269 (Version 4)
Quarter: 2020Q2

REPORT INFORMATION
  Report Type: Report from Study
  Country: US (occurrence: US)
  Receive Date: 20190813
  Receipt Date: 20200523
  Transmission Date: 20200713
  Serious: Yes (Other)
  Sender: FDA-Public Use
  Company Number: US-ROCHE-2377243

PATIENT

DRUGS (4)
  1. OFRANERGENE OBADENOVEC [Suspect]
     Active Substance: OFRANERGENE OBADENOVEC
     Indication: GLIOBLASTOMA
     Dosage: 10E13VPS
     Route: 065
  2. ACETAMINOPHEN. [Concomitant]
     Active Substance: ACETAMINOPHEN
  3. DEXAMETHASONE. [Concomitant]
     Active Substance: DEXAMETHASONE
     Dosage: PRE-DOSE DEXAMETHASONE (10MG) FOLLOWED BY 4 MG TWICE DAILY FOR 3 DAYS POST DOSING TO PREVENT POTENTI
     Route: 065
  4. BEVACIZUMAB. [Suspect]
     Active Substance: BEVACIZUMAB
     Indication: GLIOBLASTOMA
     Route: 065

REACTIONS (6)
  - Syncope [Unknown]
  - Hemiparesis [Unknown]
  - Confusional state [Unknown]
  - Pyrexia [Unknown]
  - Seizure [Unknown]
  - Headache [Unknown]
